FAERS Safety Report 17258753 (Version 1)
Quarter: 2020Q1

REPORT INFORMATION
  Report Type: Spontaneous
  Country: US (occurrence: US)
  Receive Date: 20200110
  Receipt Date: 20200110
  Transmission Date: 20200409
  Serious: Yes (Death)
  Sender: FDA-Public Use
  Company Number: US-BAYER-2020-003275

PATIENT
  Age: 69 Year
  Sex: Female

DRUGS (5)
  1. FLECAINIDE [Suspect]
     Active Substance: FLECAINIDE
  2. CLONAZEPAM. [Suspect]
     Active Substance: CLONAZEPAM
  3. MONTELUKAST [Suspect]
     Active Substance: MONTELUKAST SODIUM
  4. ACETYLSALICYLIC ACID [Suspect]
     Active Substance: ASPIRIN
     Route: 048
  5. MELATONIN [Suspect]
     Active Substance: MELATONIN

REACTIONS (2)
  - Completed suicide [Fatal]
  - Toxicity to various agents [Fatal]
